FAERS Safety Report 5656444-3 (Version None)
Quarter: 2008Q1

REPORT INFORMATION
  Report Type: 
  Country: None (occurrence: None)
  Receive Date: 20080309
  Receipt Date: 20080115
  Transmission Date: 20080703
  Serious: No
  Sender: FDA-Public Use
  Company Number: US-BAYER-200810230BCC

PATIENT
  Age: 61 Year
  Sex: Female

DRUGS (6)
  1. ALEVE [Suspect]
     Indication: PAIN
     Dosage: TOTAL DAILY DOSE: 440 MG  UNIT DOSE: 220 MG
     Route: 048
     Dates: end: 20080107
  2. ALEVE [Suspect]
     Indication: PAIN
     Dosage: TOTAL DAILY DOSE: 220 MG  UNIT DOSE: 220 MG
     Route: 048
     Dates: start: 20080110
  3. ALEVE [Suspect]
     Dosage: TOTAL DAILY DOSE: 440 MG  UNIT DOSE: 220 MG
     Route: 048
     Dates: start: 20080107, end: 20080109
  4. NEURONTIN [Concomitant]
  5. PRINIVIL [Concomitant]
  6. LIPITOR [Concomitant]

REACTIONS (3)
  - CARDIAC FLUTTER [None]
  - HEART RATE INCREASED [None]
  - PALPITATIONS [None]
